FAERS Safety Report 8832469 (Version 1)
Quarter: 2012Q4

REPORT INFORMATION
  Report Type: Spontaneous
  Country: CA (occurrence: None)
  Receive Date: 20121005
  Receipt Date: 20121005
  Transmission Date: 20130627
  Serious: Yes (Other)
  Sender: FDA-Public Use
  Company Number: 2012P1059899

PATIENT
  Age: 47 Year
  Sex: Male

DRUGS (1)
  1. PHENYTOIN [Suspect]
     Indication: SEIZURES

REACTIONS (12)
  - Anticonvulsant drug level above therapeutic [None]
  - Cognitive disorder [None]
  - Agitation [None]
  - Confusional state [None]
  - Somnolence [None]
  - Mental disorder [None]
  - Abnormal behaviour [None]
  - Hypoalbuminaemia [None]
  - Carnitine decreased [None]
  - Blood bilirubin increased [None]
  - Toxicity to various agents [None]
  - Ammonia increased [None]
